FAERS Safety Report 8226897-5 (Version None)
Quarter: 2012Q1

REPORT INFORMATION
  Report Type: 
  Country: None (occurrence: None)
  Receive Date: 20120322
  Receipt Date: 20120313
  Transmission Date: 20120608
  Serious: Yes (Hospitalization)
  Sender: FDA-Public Use
  Company Number: US-BAYER-2012-025723

PATIENT
  Age: 35 Year
  Sex: Female
  Weight: 152.83 kg

DRUGS (9)
  1. SYNTHROID [Concomitant]
  2. VITAMIN B COMPLEX CAP [Concomitant]
  3. YASMIN [Suspect]
  4. PHENTERMINE [Concomitant]
     Dosage: 37.5 MG, QD
  5. TOPIRAMATE [Concomitant]
     Dosage: 50 MG, BID
     Route: 048
  6. WELLBUTRIN XL [Concomitant]
     Dosage: 150 MG, QD
     Route: 048
  7. DROSPIRENONE AND ETHINYL ESTRADIOL [Suspect]
  8. YAZ [Suspect]
  9. VITAMIN D [Concomitant]
     Dosage: 50000 IU, OW
     Route: 048

REACTIONS (3)
  - ARTERIAL THROMBOSIS [None]
  - ARTERIAL THROMBOSIS LIMB [None]
  - SUBCLAVIAN ARTERY THROMBOSIS [None]
